FAERS Safety Report 4683433-8 (Version None)
Quarter: 2005Q2

REPORT INFORMATION
  Report Type: 
  Country: None (occurrence: None)
  Receive Date: 20050607
  Receipt Date: 20050526
  Transmission Date: 20051028
  Serious: Yes (Other)
  Sender: FDA-Public Use
  Company Number: US-JNJFOC-20050507148

PATIENT
  Sex: Female

DRUGS (19)
  1. INFLIXIMAB [Suspect]
     Indication: RHEUMATOID ARTHRITIS
     Route: 042
  2. DARVOCET [Concomitant]
  3. DARVOCET [Concomitant]
  4. VALIUM [Concomitant]
  5. MULTI-VITAMIN [Concomitant]
  6. MULTI-VITAMIN [Concomitant]
  7. MULTI-VITAMIN [Concomitant]
  8. MULTI-VITAMIN [Concomitant]
  9. MULTI-VITAMIN [Concomitant]
  10. MULTI-VITAMIN [Concomitant]
  11. MULTI-VITAMIN [Concomitant]
  12. MULTI-VITAMIN [Concomitant]
  13. HYDROCHLOROTHIAZIDE [Concomitant]
  14. POTASSIUM CHLORIDE [Concomitant]
  15. CALCIUM GLUCONATE [Concomitant]
  16. PREMARIN [Concomitant]
  17. HUMIRA [Concomitant]
  18. PREDNISONE [Concomitant]
  19. TYLENOL (CAPLET) [Concomitant]

REACTIONS (1)
  - SQUAMOUS CELL CARCINOMA [None]
